FAERS Safety Report 9067833 (Version 1)
Quarter: 2013Q1

REPORT INFORMATION
  Report Type: Spontaneous
  Country: AU (occurrence: AU)
  Receive Date: 20130215
  Receipt Date: 20130215
  Transmission Date: 20140127
  Serious: Yes (Hospitalization)
  Sender: FDA-Public Use
  Company Number: AU-009507513-1302AUS005195

PATIENT
  Age: 74 Year
  Sex: Female
  Weight: 60 kg

DRUGS (4)
  1. CLARATYNE [Suspect]
     Indication: SEASONAL ALLERGY
     Dosage: 1 DF, QD
     Dates: start: 20121103, end: 20121104
  2. DIAZEPAM [Concomitant]
  3. TEMAZEPAM [Concomitant]
  4. FENTANYL [Concomitant]
     Dosage: PATCH

REACTIONS (3)
  - Arrhythmia [Recovered/Resolved]
  - Chest pain [Recovered/Resolved]
  - Heart rate increased [Recovered/Resolved]
